FAERS Safety Report 19468212 (Version 2)
Quarter: 2021Q4

REPORT INFORMATION
  Report Type: Spontaneous
  Country: JP (occurrence: JP)
  Receive Date: 20210628
  Receipt Date: 20211020
  Transmission Date: 20220304
  Serious: Yes (Other)
  Sender: FDA-Public Use
  Company Number: JP-002147023-NVSJ2021JP009005

PATIENT

DRUGS (3)
  1. RUXOLITINIB [Suspect]
     Active Substance: RUXOLITINIB
     Indication: Myelofibrosis
     Dosage: 50 MG
     Route: 048
  2. RUXOLITINIB [Suspect]
     Active Substance: RUXOLITINIB
     Dosage: 10 MG
     Route: 048
  3. RUXOLITINIB [Suspect]
     Active Substance: RUXOLITINIB
     Dosage: 50 MG
     Route: 048

REACTIONS (3)
  - Chronic myeloid leukaemia [Not Recovered/Not Resolved]
  - Second primary malignancy [Not Recovered/Not Resolved]
  - Platelet count decreased [Recovered/Resolved]

NARRATIVE: CASE EVENT DATE: 20180101
